FAERS Safety Report 5287294-8 (Version None)
Quarter: 2007Q1

REPORT INFORMATION
  Report Type: 
  Country: None (occurrence: None)
  Receive Date: 20070116
  Receipt Date: 20061005
  Transmission Date: 20070707
  Serious: No
  Sender: FDA-Public Use
  Company Number: 2006SP003562

PATIENT
  Age: 70 Year
  Sex: Male
  Weight: 65.7716 kg

DRUGS (7)
  1. LUNESTA [Suspect]
     Indication: INSOMNIA
     Dosage: SEE IMAGE
     Route: 048
     Dates: start: 20060901, end: 20060901
  2. LUNESTA [Suspect]
     Indication: INSOMNIA
     Dosage: SEE IMAGE
     Route: 048
     Dates: start: 20060901, end: 20060901
  3. LUNESTA [Suspect]
     Indication: INSOMNIA
     Dosage: SEE IMAGE
     Route: 048
     Dates: start: 20060901
  4. LUNESTA [Suspect]
     Indication: INSOMNIA
     Dosage: SEE IMAGE
     Route: 048
     Dates: start: 20060901
  5. TAMSULOSIN HCL [Suspect]
     Indication: PROSTATITIS
     Dosage: QD; ORAL
     Route: 048
     Dates: start: 20060901
  6. CIPROFLOXACIN [Suspect]
     Indication: PROSTATITIS
     Dosage: BID; ORAL
     Route: 048
     Dates: start: 20060901
  7. LOPID [Concomitant]

REACTIONS (6)
  - ANOREXIA [None]
  - FATIGUE [None]
  - HANGOVER [None]
  - INSOMNIA [None]
  - PROSTATITIS [None]
  - WEIGHT DECREASED [None]
